FAERS Safety Report 5066907-X (Version None)
Quarter: 2006Q3

REPORT INFORMATION
  Report Type: 
  Country: None (occurrence: None)
  Receive Date: 20060728
  Receipt Date: 20060718
  Transmission Date: 20061208
  Serious: Yes (Life-Threatening, Hospitalization)
  Sender: FDA-Public Use
  Company Number: S06-USA-02306-02

PATIENT
  Sex: Male
  Weight: 1.11 kg

DRUGS (2)
  1. LEXAPRO [Suspect]
     Dosage: 20 MG QD TRANSPLACENTAL
     Route: 064
     Dates: start: 20060101, end: 20060603
  2. METHADONE HCL [Concomitant]

REACTIONS (5)
  - DRUG EXPOSURE DURING PREGNANCY [None]
  - FEEDING DISORDER NEONATAL [None]
  - LIFE SUPPORT [None]
  - PREMATURE BABY [None]
  - RESPIRATORY DISORDER NEONATAL [None]
